FAERS Safety Report 8998887 (Version 2)
Quarter: 2013Q1

REPORT INFORMATION
  Report Type: Spontaneous
  Country: US (occurrence: US)
  Receive Date: 20130103
  Receipt Date: 20130131
  Transmission Date: 20140127
  Serious: No
  Sender: FDA-Public Use
  Company Number: US-PFIZER INC-2012333275

PATIENT
  Age: 48 Year
  Sex: Male
  Weight: 67.57 kg

DRUGS (3)
  1. ZYVOX [Suspect]
     Indication: INFECTION
     Dosage: 600 MG, 2X/DAY
     Dates: start: 20121127, end: 20121225
  2. FUROSEMIDE [Concomitant]
     Dosage: 40 MG, 2X/DAY
  3. VITAMIN B6 [Concomitant]
     Indication: SUPPLEMENTATION THERAPY
     Dosage: 50 MG, DAILY

REACTIONS (6)
  - Drug intolerance [Unknown]
  - Ageusia [Not Recovered/Not Resolved]
  - Teething [Not Recovered/Not Resolved]
  - Rash [Not Recovered/Not Resolved]
  - Skin irritation [Not Recovered/Not Resolved]
  - Nasopharyngitis [Not Recovered/Not Resolved]
